FAERS Safety Report 9319729 (Version 1)
Quarter: 2013Q2

REPORT INFORMATION
  Report Type: Spontaneous
  Country: CA (occurrence: CA)
  Receive Date: 20130530
  Receipt Date: 20130530
  Transmission Date: 20140414
  Serious: Yes (Hospitalization)
  Sender: FDA-Public Use
  Company Number: CA-GLAXOSMITHKLINE-A0967512A

PATIENT
  Age: 90 Year
  Sex: Female

DRUGS (6)
  1. VOTRIENT [Suspect]
     Indication: RENAL CANCER METASTATIC
     Dosage: 800MG PER DAY
     Route: 048
     Dates: start: 20120217
  2. METOPROLOL [Concomitant]
  3. WARFARIN [Concomitant]
  4. COVERSYL [Concomitant]
  5. HYDROMORPHONE [Concomitant]
  6. PAIN MEDICATION (UNSPECIFIED) [Concomitant]

REACTIONS (5)
  - Diarrhoea [Not Recovered/Not Resolved]
  - Vomiting [Unknown]
  - Hip fracture [Unknown]
  - Hip surgery [Unknown]
  - Fall [Unknown]
